FAERS Safety Report 14726865 (Version 1)
Quarter: 2018Q2

REPORT INFORMATION
  Report Type: Spontaneous
  Country: IN (occurrence: IN)
  Receive Date: 20180406
  Receipt Date: 20180406
  Transmission Date: 20180711
  Serious: Yes (Hospitalization, Other)
  Sender: FDA-Public Use
  Company Number: IN-TORRENT-00001651

PATIENT
  Age: 21 Year
  Sex: Female

DRUGS (1)
  1. METFORMIN HYDROCHLORIDE. [Suspect]
     Active Substance: METFORMIN HYDROCHLORIDE
     Indication: PRODUCT USED FOR UNKNOWN INDICATION
     Dosage: UNKNOWN
     Route: 048

REACTIONS (8)
  - Prescription drug used without a prescription [Unknown]
  - Parotid gland enlargement [Unknown]
  - Drug abuse [Unknown]
  - Salivary gland enlargement [Unknown]
  - Hypoglycaemic coma [Unknown]
  - Overdose [Unknown]
  - Cholelithiasis [Unknown]
  - Major depression [Recovering/Resolving]
